FAERS Safety Report 5001850-3 (Version None)
Quarter: 2006Q2

REPORT INFORMATION
  Report Type: 
  Country: None (occurrence: None)
  Receive Date: 20060515
  Receipt Date: 20060505
  Transmission Date: 20061013
  Serious: Yes (Other)
  Sender: FDA-Public Use
  Company Number: GB-GLAXOSMITHKLINE-B0422737A

PATIENT
  Age: 38 Year
  Sex: Female

DRUGS (2)
  1. ZOVIRAX [Suspect]
     Route: 042
     Dates: start: 20060307
  2. NO CONCURRENT MEDICATION [Concomitant]

REACTIONS (2)
  - ABORTION SPONTANEOUS [None]
  - DRUG EXPOSURE DURING PREGNANCY [None]
